FAERS Safety Report 8763014 (Version 1)
Quarter: 2012Q4

REPORT INFORMATION
  Report Type: Spontaneous
  Country: US (occurrence: None)
  Receive Date: 20120830
  Receipt Date: 20120830
  Transmission Date: 20130627
  Serious: Yes (Other)
  Sender: FDA-Public Use
  Company Number: None

PATIENT
  Age: 16 Year
  Sex: Male
  Weight: 61.1 kg

DRUGS (3)
  1. FLOMAX [Suspect]
     Indication: BLADDER RETENTION
     Route: 048
     Dates: start: 20120523, end: 20120527
  2. FLOMAX [Suspect]
     Indication: BLADDER DYSFUNCTION
     Route: 048
     Dates: start: 20120523, end: 20120527
  3. FLOMAX [Suspect]
     Route: 048
     Dates: start: 20120523, end: 20120527

REACTIONS (3)
  - Syncope [None]
  - Nausea [None]
  - Product substitution issue [None]
